FAERS Safety Report 6280528-2 (Version None)
Quarter: 2009Q3

REPORT INFORMATION
  Report Type: 
  Country: None (occurrence: None)
  Receive Date: 20090724
  Receipt Date: 20090403
  Transmission Date: 20100115
  Serious: Yes (Hospitalization)
  Sender: FDA-Public Use
  Company Number: A0745224A

PATIENT
  Age: 63 Year
  Sex: Male
  Weight: 90.9 kg

DRUGS (10)
  1. AVANDIA [Suspect]
     Dosage: 2MG PER DAY
     Route: 048
     Dates: start: 20050101, end: 20070901
  2. GLUCOPHAGE [Concomitant]
     Dosage: 500MG TWICE PER DAY
     Dates: start: 20060101
  3. METFORMIN HCL [Concomitant]
     Dosage: 500MG TWICE PER DAY
     Dates: start: 20000101, end: 20060101
  4. METOPROLOL SUCCINATE [Concomitant]
     Dates: start: 20050101
  5. ZOCOR [Concomitant]
  6. IMDUR [Concomitant]
  7. WARFARIN SODIUM [Concomitant]
  8. LASIX [Concomitant]
  9. NORVASC [Concomitant]
  10. ZANTAC [Concomitant]

REACTIONS (1)
  - CARDIAC FAILURE CONGESTIVE [None]
